FAERS Safety Report 10189816 (Version 1)
Quarter: 2014Q2

REPORT INFORMATION
  Report Type: Spontaneous
  Country: GB (occurrence: GB)
  Receive Date: 20140522
  Receipt Date: 20140522
  Transmission Date: 20141212
  Serious: Yes (Other)
  Sender: FDA-Public Use
  Company Number: GB-GALDERMA-GB14001848

PATIENT
  Age: 54 Year
  Sex: Female
  Weight: 80 kg

DRUGS (5)
  1. DOXYCYCLINE [Suspect]
     Dates: start: 20140204
  2. LEVOTHYROXINE [Concomitant]
     Dates: start: 20131112, end: 20140204
  3. LEVOTHYROXINE [Concomitant]
     Dates: start: 20140224
  4. AMOXICILLIN [Concomitant]
     Dates: start: 20140428
  5. ERYTHROMYCIN [Concomitant]
     Dates: start: 20140502

REACTIONS (1)
  - Mouth swelling [Recovering/Resolving]
